FAERS Safety Report 7579413-5 (Version None)
Quarter: 2011Q2

REPORT INFORMATION
  Report Type: 
  Country: None (occurrence: None)
  Receive Date: 20110629
  Receipt Date: 20110621
  Transmission Date: 20111010
  Serious: Yes (Hospitalization)
  Sender: FDA-Public Use
  Company Number: US-BIOGENIDEC-2011BI021432

PATIENT
  Age: 79 Year
  Sex: Female
  Weight: 69 kg

DRUGS (14)
  1. AMPLODIDPINE [Concomitant]
  2. MACROBID [Concomitant]
  3. XANAX [Concomitant]
  4. PHENERGAN HCL [Concomitant]
  5. BACLOFEN [Concomitant]
  6. NITROGLYCERIN [Concomitant]
  7. TYSABRI [Suspect]
     Indication: MULTIPLE SCLEROSIS
     Route: 042
     Dates: start: 20110425, end: 20110523
  8. INSULIN [Concomitant]
  9. LEVAQUIN [Concomitant]
  10. SYNTHROID [Concomitant]
  11. TOPROL-XL [Concomitant]
  12. ASPIRIN [Concomitant]
  13. FLEXERIL [Concomitant]
  14. LORTAB [Concomitant]

REACTIONS (2)
  - ESCHERICHIA URINARY TRACT INFECTION [None]
  - MULTIPLE SCLEROSIS RELAPSE [None]
